FAERS Safety Report 5761334-1 (Version None)
Quarter: 2008Q2

REPORT INFORMATION
  Report Type: 
  Country: None (occurrence: None)
  Receive Date: 20080606
  Receipt Date: 20080529
  Transmission Date: 20081010
  Serious: Yes (Hospitalization)
  Sender: FDA-Public Use
  Company Number: US-AMGEN-US283225

PATIENT
  Sex: Female

DRUGS (3)
  1. NEUPOGEN [Suspect]
     Indication: DRUG USE FOR UNKNOWN INDICATION
     Dates: start: 20080318, end: 20080401
  2. PEGINTERFERON ALFA-2A [Suspect]
     Dates: start: 20080224
  3. RIBAVIRIN [Suspect]
     Dates: start: 20080224

REACTIONS (8)
  - ANOREXIA [None]
  - ASTHENIA [None]
  - EXTRASYSTOLES [None]
  - HEADACHE [None]
  - MIGRAINE [None]
  - PALPITATIONS [None]
  - VOMITING [None]
  - WHITE BLOOD CELL COUNT INCREASED [None]
